FAERS Safety Report 4315956-5 (Version None)
Quarter: 2004Q1

REPORT INFORMATION
  Report Type: 
  Country: None (occurrence: None)
  Receive Date: 20040311
  Receipt Date: 20040311
  Transmission Date: 20041129
  Serious: Yes (Life-Threatening)
  Sender: FDA-Public Use
  Company Number: None

PATIENT
  Age: 47 Year
  Sex: Male
  Weight: 95.2554 kg

DRUGS (4)
  1. ROCEPHIN [Suspect]
     Indication: PANCREATITIS
     Dosage: 1 GRAM IV Q34 HOURS
     Route: 042
     Dates: start: 20040224
  2. ROCEPHIN [Suspect]
     Indication: PANCREATITIS
     Dosage: 1 GRAM IV Q34 HOURS
     Route: 042
     Dates: start: 20040225
  3. ROCEPHIN [Suspect]
     Indication: PANCREATITIS
     Dosage: 1 GRAM IV Q34 HOURS
     Route: 042
     Dates: start: 20040226
  4. HYDROCHLOROTHIAZIDE [Concomitant]

REACTIONS (5)
  - AGITATION [None]
  - BLOOD PRESSURE INCREASED [None]
  - HALLUCINATION [None]
  - HEART RATE INCREASED [None]
  - PYREXIA [None]
